FAERS Safety Report 11668746 (Version 4)
Quarter: 2016Q1

REPORT INFORMATION
  Report Type: Spontaneous
  Country: US (occurrence: US)
  Receive Date: 20151027
  Receipt Date: 20160112
  Transmission Date: 20160525
  Serious: No
  Sender: FDA-Public Use
  Company Number: US-PFIZER INC-2015345166

PATIENT
  Age: 53 Year
  Sex: Female

DRUGS (56)
  1. ECOTRIN [Concomitant]
     Active Substance: ASPIRIN
     Indication: CARDIAC DISORDER
     Dosage: 81 MG, DAILY
     Route: 048
  2. IVIG [Concomitant]
     Active Substance: HUMAN IMMUNOGLOBULIN G
     Indication: IMMUNODEFICIENCY COMMON VARIABLE
     Dosage: 40 G, UNK (EVERY 28 DAYS)
     Route: 042
  3. AMBIEN [Concomitant]
     Active Substance: ZOLPIDEM TARTRATE
     Indication: INSOMNIA
     Dosage: 10 UNK, 1X/DAY (BEDTIME)
     Route: 048
  4. MOBIC [Concomitant]
     Active Substance: MELOXICAM
     Indication: ARTHRALGIA
     Dosage: 15 MG, DAILY
  5. MOBIC [Concomitant]
     Active Substance: MELOXICAM
     Indication: MYALGIA
  6. CHARCOAL [Concomitant]
     Active Substance: ACTIVATED CHARCOAL
     Indication: IMMUNE SYSTEM DISORDER
     Dosage: 1000 MG, 2X/DAY
     Route: 048
  7. BENADRYL [Concomitant]
     Active Substance: DIPHENHYDRAMINE HYDROCHLORIDE
     Dosage: 50 MG, AS NEEDED
     Route: 042
  8. MEDROL DOSE PACK [Concomitant]
     Active Substance: METHYLPREDNISOLONE
     Indication: ASTHMA PROPHYLAXIS
     Dosage: 4 MG, AS NEEDED
     Route: 048
  9. EPIPEN [Concomitant]
     Active Substance: EPINEPHRINE
     Indication: HYPERSENSITIVITY
     Dosage: UNK UNK, AS NEEDED
     Route: 030
  10. LIDOCAINE. [Concomitant]
     Active Substance: LIDOCAINE
     Indication: COUGH
     Dosage: 4 %, AS NEEDED (TID)
     Route: 045
  11. TESSALON [Concomitant]
     Active Substance: BENZONATATE
     Indication: COUGH
     Dosage: 100 MG, AS NEEDED (QID)
     Route: 048
  12. ADVIL [Concomitant]
     Active Substance: IBUPROFEN
     Indication: ARTHRALGIA
     Dosage: UNK, AS NEEDED (200-800 MG, DAILY)
     Route: 048
  13. LYRICA [Concomitant]
     Active Substance: PREGABALIN
     Indication: NEUROPATHY PERIPHERAL
     Dosage: 150 MG, 2X/DAY
     Route: 048
  14. LIDOCAINE. [Concomitant]
     Active Substance: LIDOCAINE
     Indication: LARYNGOSPASM
  15. FLUCONAZOLE. [Concomitant]
     Active Substance: FLUCONAZOLE
     Dosage: 100 MG, AS NEEDED (DAILY)
     Route: 048
  16. NORPACE [Suspect]
     Active Substance: DISOPYRAMIDE PHOSPHATE
     Indication: AUTONOMIC DYSREFLEXIA
     Dosage: 300 MG, 3X/DAY
  17. DISOPYRAMIDE PHOSPHATE. [Suspect]
     Active Substance: DISOPYRAMIDE PHOSPHATE
     Indication: SUPRAVENTRICULAR TACHYCARDIA
     Dosage: 300 MG, 3X/DAY
  18. ADVAIR DISCUS [Concomitant]
     Indication: ASTHMA
     Dosage: UNK UNK, 2X/DAY (250MCG FLUTICASONE PROPIONATE, 50 MCGSALMETEROL XINAFOATE)
     Route: 045
  19. BUMEX [Concomitant]
     Active Substance: BUMETANIDE
     Indication: OEDEMA PERIPHERAL
     Dosage: 0.5 MG, DAILY
     Route: 048
  20. GLUCOSAMINE CHONDROITIN [Concomitant]
     Active Substance: CHONDROITIN SULFATE (BOVINE)\GLUCOSAMINE HYDROCHLORIDE
     Indication: ARTHROPATHY
     Dosage: UNK, DAILY
     Route: 048
  21. PHOSPHATIDYL SERINE [Concomitant]
     Active Substance: PHOSPHATIDYL SERINE
     Indication: SLEEP DISORDER
     Dosage: 200 MG, 1X/DAY (AT BEDTIME)
     Route: 048
  22. XOPENEX [Concomitant]
     Active Substance: LEVALBUTEROL HYDROCHLORIDE
     Indication: ASTHMA PROPHYLAXIS
     Dosage: UNK UNK, AS NEEDED (1.25 MG/ 3ML, -4 TIMES/DAY)
  23. MIRAPEX [Concomitant]
     Active Substance: PRAMIPEXOLE DIHYDROCHLORIDE
     Indication: RESTLESS LEGS SYNDROME
     Dosage: 1.5 MG, DAILY
     Route: 048
  24. METHYL FOLATE [Concomitant]
     Indication: FOLATE DEFICIENCY
     Dosage: 400 UG, DAILY
     Route: 048
  25. SOLU-MEDROL [Concomitant]
     Active Substance: METHYLPREDNISOLONE SODIUM SUCCINATE
     Dosage: 250 MG, AS NEEDED
     Route: 042
  26. FIORICET [Concomitant]
     Active Substance: ACETAMINOPHEN\BUTALBITAL\CAFFEINE
     Indication: MIGRAINE
     Dosage: UNK, AS NEEDED (PRIOR TO IVIG THEN Q 6)
     Route: 048
  27. PROMETHAZINE WITH CODEINE [Concomitant]
     Active Substance: CODEINE PHOSPHATE\PROMETHAZINE HYDROCHLORIDE
     Indication: COUGH
     Dosage: UNK UNK, AS NEEDED (6.25MG/5MG/5ML)
     Route: 048
  28. PROBIOTICS [Concomitant]
     Active Substance: PROBIOTICS NOS
     Indication: DYSPEPSIA
     Dosage: UNK, DAILY
     Route: 048
  29. NORPACE [Suspect]
     Active Substance: DISOPYRAMIDE PHOSPHATE
     Indication: SUPRAVENTRICULAR TACHYCARDIA
     Dosage: 450 MG, 2X/DAY
  30. ACCOLATE [Concomitant]
     Active Substance: ZAFIRLUKAST
     Indication: ASTHMA
     Dosage: 20 MG, 2X/DAY
     Route: 048
  31. POTASSIUM CHLORIDE. [Concomitant]
     Active Substance: POTASSIUM CHLORIDE
     Indication: ELECTROLYTE IMBALANCE
     Dosage: 20 MEQ, DAILY
     Route: 048
  32. DEXILANT [Concomitant]
     Active Substance: DEXLANSOPRAZOLE
     Indication: GASTROOESOPHAGEAL REFLUX DISEASE
     Dosage: 60 MG, DAILY
     Route: 048
  33. NALTREXONE [Concomitant]
     Active Substance: NALTREXONE
     Indication: IMMUNE SYSTEM DISORDER
     Dosage: 0.5 MG, DAILY
     Route: 048
  34. FAMVIR [Concomitant]
     Active Substance: FAMCICLOVIR
     Indication: VIRAL INFECTION
     Dosage: 500 MG, 2X/DAY
     Route: 048
  35. MAGNESIUM CITRAMATE [Concomitant]
     Indication: CARDIAC DISCOMFORT
     Dosage: 40 MG, DAILY
     Route: 048
  36. COQ10 UBQH [Concomitant]
     Indication: CARDIAC DISORDER
     Dosage: 200 MG, DAILY
     Route: 048
  37. AZITHROMYCIN ANHYDROUS. [Concomitant]
     Active Substance: AZITHROMYCIN ANHYDROUS
     Indication: ASTHMA PROPHYLAXIS
     Dosage: 500 MG, AS NEEDED (DAILY)
     Route: 048
  38. TRAMADOL. [Concomitant]
     Active Substance: TRAMADOL
     Indication: NEUROPATHY PERIPHERAL
     Dosage: 300 MG, DAILY
     Route: 048
  39. SERTRALINE [Concomitant]
     Active Substance: SERTRALINE HYDROCHLORIDE
     Indication: FIBROMYALGIA
     Dosage: 100 MG, 1X/DAY (BEDTIME)
     Route: 048
  40. IBEROGAST [Concomitant]
     Active Substance: HERBALS
     Indication: IRRITABLE BOWEL SYNDROME
     Dosage: UNK, 3X/DAY (20 DROPS)
     Route: 048
  41. XIFAXAN [Concomitant]
     Active Substance: RIFAXIMIN
     Indication: IRRITABLE BOWEL SYNDROME
     Dosage: 200 MG, 3X/DAY (10 DAYS MONTHLY)
     Route: 048
  42. CROMOLYN SODIUM. [Concomitant]
     Active Substance: CROMOLYN SODIUM
     Indication: MASTOCYTOSIS
     Dosage: UNK, 3X/DAY (20 MG/2 ML)
  43. VITAMIN D3 [Concomitant]
     Active Substance: CHOLECALCIFEROL
     Indication: CARDIAC DISCOMFORT
     Dosage: 5000 MG, DAILY
     Route: 048
  44. OCEAN BLUE OMEGA 3 [Concomitant]
     Indication: CARDIAC DISORDER
     Dosage: 4200 MG, DAILY (2 TABLETS DAILY)
     Route: 048
  45. AMICA [Concomitant]
     Indication: PAIN MANAGEMENT
     Dosage: UNK, 3X/DAY
     Route: 048
  46. CARAFATE [Concomitant]
     Active Substance: SUCRALFATE
     Indication: GASTROOESOPHAGEAL REFLUX DISEASE
     Dosage: UNK, AS NEEDED (100 MG/ML,BEDTIME)
     Route: 048
  47. DISOPYRAMIDE PHOSPHATE. [Suspect]
     Active Substance: DISOPYRAMIDE PHOSPHATE
     Indication: AUTONOMIC DYSREFLEXIA
  48. FLUTICASONE PROPIONATE. [Concomitant]
     Active Substance: FLUTICASONE PROPIONATE
     Indication: ASTHMA
     Dosage: 50 UG, 1X/DAY (BEDTIME)
     Route: 045
  49. XOPENEX HFA [Concomitant]
     Active Substance: LEVALBUTEROL TARTRATE
     Indication: ASTHMA
     Dosage: 45 UG, AS NEEDED (BEDTIME AND PRN)
     Route: 045
  50. LYRICA [Concomitant]
     Active Substance: PREGABALIN
     Indication: FIBROMYALGIA
  51. METHYL B12 [Concomitant]
     Indication: ANAEMIA
     Dosage: 1000 UG, DAILY
     Route: 048
  52. K-PAX IMMUNE SUPPORT [Concomitant]
     Indication: IMMUNE SYSTEM DISORDER
     Dosage: UNK, 2X/DAY
     Route: 048
  53. TUMERIC CURCUMIN [Concomitant]
     Indication: INFLAMMATORY PAIN
     Dosage: 1000 MG, DAILY
     Route: 048
  54. ZOFRAN [Concomitant]
     Active Substance: ONDANSETRON HYDROCHLORIDE
     Dosage: 8 MG, AS NEEDED
     Route: 048
  55. IMITREX [Concomitant]
     Active Substance: SUMATRIPTAN SUCCINATE
     Indication: MIGRAINE
     Dosage: 5 UG, AS NEEDED
     Route: 045
  56. ADVIL [Concomitant]
     Active Substance: IBUPROFEN
     Indication: MYALGIA

REACTIONS (2)
  - Drug ineffective for unapproved indication [Not Recovered/Not Resolved]
  - Drug dispensing error [Not Recovered/Not Resolved]
